FAERS Safety Report 18317462 (Version 1)
Quarter: 2020Q3

REPORT INFORMATION
  Report Type: Spontaneous
  Country: LV (occurrence: LV)
  Receive Date: 20200928
  Receipt Date: 20200928
  Transmission Date: 20201103
  Serious: Yes (Other)
  Sender: FDA-Public Use
  Company Number: LV-TEVA-2020-LV-1829062

PATIENT
  Age: 75 Year
  Sex: Male
  Weight: 70 kg

DRUGS (4)
  1. ATACAND [Concomitant]
     Active Substance: CANDESARTAN CILEXETIL
     Dosage: 16 MILLIGRAM DAILY;
  2. ATORVASTATIN 80 MG [Concomitant]
     Active Substance: ATORVASTATIN
     Dosage: 80 MILLIGRAM DAILY;
  3. NEBIVOLOL 5 MG [Concomitant]
     Active Substance: NEBIVOLOL
     Dosage: 5 MILLIGRAM DAILY;
  4. DUTAMSIN 0,5 MG / 0,4 MG CIETAS KAPSULAS [Suspect]
     Active Substance: DUTASTERIDE\TAMSULOSIN HYDROCHLORIDE
     Indication: BENIGN PROSTATIC HYPERPLASIA
     Dosage: FOR ACTIVE INGREDIENT DUTASTERIDUM THE STRENGTH IS 0.5 MILLIGRAM. FOR ACTIVE INGREDIENT TAMSULOSIN T
     Route: 048
     Dates: start: 20200305, end: 20200505

REACTIONS (3)
  - Urinary retention [Recovered/Resolved]
  - Urine flow decreased [Recovered/Resolved]
  - Therapeutic product effect incomplete [Unknown]

NARRATIVE: CASE EVENT DATE: 20200306
